FAERS Safety Report 9734247 (Version 1)
Quarter: 2013Q4

REPORT INFORMATION
  Report Type: Spontaneous
  Country: US (occurrence: US)
  Receive Date: 20131205
  Receipt Date: 20131205
  Transmission Date: 20140711
  Serious: No
  Sender: FDA-Public Use
  Company Number: US-009507513-1312USA002678

PATIENT
  Age: 30 Year
  Sex: Female

DRUGS (6)
  1. CLARITIN-D-24 [Suspect]
     Indication: HYPERSENSITIVITY
     Dosage: UNK, UNKNOWN
     Route: 048
  2. CLARITIN-D-24 [Suspect]
     Indication: RHINORRHOEA
  3. CLARITIN-D-24 [Suspect]
     Indication: COUGH
  4. CLARITIN-D-24 [Suspect]
     Indication: URTICARIA
  5. CLARITIN-D-24 [Suspect]
     Indication: EYE IRRITATION
  6. CLARITIN-D-24 [Suspect]
     Indication: NASAL CONGESTION

REACTIONS (1)
  - Drug effect decreased [Unknown]
